FAERS Safety Report 4492402-2 (Version None)
Quarter: 2004Q4

REPORT INFORMATION
  Report Type: 
  Country: None (occurrence: None)
  Receive Date: 20041102
  Receipt Date: 20041102
  Transmission Date: 20050328
  Serious: Yes (Other)
  Sender: FDA-Public Use
  Company Number: None

PATIENT
  Age: 19 Year
  Sex: Female

DRUGS (1)
  1. VALPROIC ACID [Suspect]
     Indication: BIPOLAR DISORDER
     Dosage: 250 MG BID PO
     Route: 048
     Dates: start: 20041028, end: 20041029

REACTIONS (2)
  - PRURITUS [None]
  - RASH [None]
